FAERS Safety Report 15666197 (Version 2)
Quarter: 2018Q4

REPORT INFORMATION
  Report Type: Spontaneous
  Country: FR (occurrence: FR)
  Receive Date: 20181128
  Receipt Date: 20181128
  Transmission Date: 20190205
  Serious: Yes (Other)
  Sender: FDA-Public Use
  Company Number: PHHY2018FR167278

PATIENT
  Sex: Female

DRUGS (2)
  1. OPATANOL [Suspect]
     Active Substance: OLOPATADINE
     Indication: CONJUNCTIVITIS
     Dosage: 1 MG/ML, BID
     Route: 047
     Dates: start: 20111107
  2. TOBREX [Suspect]
     Active Substance: TOBRAMYCIN
     Indication: PRODUCT USED FOR UNKNOWN INDICATION
     Dosage: 3 GTT, QD
     Route: 047

REACTIONS (2)
  - Glaucoma [Unknown]
  - Intraocular pressure increased [Unknown]
